FAERS Safety Report 8987712 (Version 2)
Quarter: 2013Q1

REPORT INFORMATION
  Report Type: Report from Study
  Country: JP (occurrence: JP)
  Receive Date: 20121227
  Receipt Date: 20130312
  Transmission Date: 20140127
  Serious: Yes (Other)
  Sender: FDA-Public Use
  Company Number: JP-VERTEX PHARMACEUTICAL INC.-2012-024174

PATIENT
  Age: 57 Year
  Sex: Male

DRUGS (12)
  1. VX-950 (TELAPREVIR) [Suspect]
     Indication: CHRONIC HEPATITIS C
     Dosage: 2250 MG, QD
     Route: 048
     Dates: start: 20120912, end: 20121031
  2. VX-950 (TELAPREVIR) [Suspect]
     Dosage: 1500 MG, QD
     Route: 048
     Dates: start: 20121101
  3. PEGINTERFERON ALFA-2B [Suspect]
     Indication: CHRONIC HEPATITIS C
     Dosage: 1.5 ?G/KG, QW
     Route: 058
     Dates: start: 20120912, end: 20130220
  4. RIBAVIRIN [Suspect]
     Indication: CHRONIC HEPATITIS C
     Dosage: 800 MG, QD
     Route: 048
     Dates: start: 20120912, end: 20121023
  5. RIBAVIRIN [Suspect]
     Dosage: 600 MG, QD
     Route: 048
     Dates: start: 20121024, end: 20121106
  6. RIBAVIRIN [Suspect]
     Dosage: 400 MG, QD
     Route: 048
     Dates: start: 20121107
  7. RIBAVIRIN [Suspect]
     Dosage: 600 MG, QD
     Route: 048
     Dates: start: 20130130, end: 20130226
  8. URSO [Concomitant]
     Dosage: 900 MG, QD
     Route: 048
     Dates: end: 20121002
  9. NORVASC [Concomitant]
     Dosage: 5 MG, QD
     Route: 048
  10. PL [Concomitant]
     Dosage: 3 G, QD
     Route: 048
     Dates: start: 20121107, end: 20121113
  11. PL [Concomitant]
     Dosage: 3 G, QD
     Route: 048
     Dates: start: 20121205, end: 20121211
  12. MUCODYNE [Concomitant]
     Dosage: 1500 MG, QD
     Route: 048
     Dates: start: 20121114, end: 20121225

REACTIONS (2)
  - Hypokalaemia [Recovered/Resolved]
  - Anaemia [Recovered/Resolved]
